FAERS Safety Report 15547841 (Version 2)
Quarter: 2019Q1

REPORT INFORMATION
  Report Type: Spontaneous
  Country: JP (occurrence: JP)
  Receive Date: 20181024
  Receipt Date: 20190109
  Transmission Date: 20190417
  Serious: Yes (Other)
  Sender: FDA-Public Use
  Company Number: JP-BAYER-2018-192404

PATIENT
  Age: 6 Decade
  Sex: Female

DRUGS (1)
  1. KOVALTRY [Suspect]
     Active Substance: ANTIHEMOPHILIC FACTOR, HUMAN RECOMBINANT
     Dosage: DAILY DOSE 2000 IU
     Route: 042
     Dates: start: 20181019

REACTIONS (1)
  - Hepatic cancer [Recovered/Resolved]
